FAERS Safety Report 14041361 (Version 1)
Quarter: 2017Q4

REPORT INFORMATION
  Report Type: Spontaneous
  Country: US (occurrence: US)
  Receive Date: 20171004
  Receipt Date: 20171004
  Transmission Date: 20180321
  Serious: No
  Sender: FDA-Public Use
  Company Number: US-BAYER-2017-189520

PATIENT
  Age: 84 Year
  Sex: Female

DRUGS (1)
  1. MIRALAX [Suspect]
     Active Substance: POLYETHYLENE GLYCOL 3350
     Indication: GASTROINTESTINAL DISORDER
     Dosage: 1 DF, QD
     Route: 048
     Dates: start: 2007

REACTIONS (6)
  - Constipation [Unknown]
  - Tinnitus [Unknown]
  - Product use issue [Unknown]
  - Anxiety [Unknown]
  - Paranoia [Unknown]
  - Off label use [Unknown]

NARRATIVE: CASE EVENT DATE: 2007
